FAERS Safety Report 8990256 (Version 2)
Quarter: 2014Q2

REPORT INFORMATION
  Report Type: Spontaneous
  Country: US (occurrence: US)
  Receive Date: 20121228
  Receipt Date: 20131018
  Transmission Date: 20141212
  Serious: Yes (Death, Hospitalization, Other)
  Sender: FDA-Public Use
  Company Number: US-PFIZER INC-2012323417

PATIENT
  Age: 36 Year
  Sex: Male

DRUGS (2)
  1. METHOTREXATE SODIUM [Suspect]
     Indication: RHEUMATOID ARTHRITIS
     Dosage: UNK
  2. ENBREL [Suspect]
     Indication: RHEUMATOID ARTHRITIS
     Dosage: UNK

REACTIONS (14)
  - Metabolic acidosis [Fatal]
  - Cholecystitis [Unknown]
  - Pancytopenia [Unknown]
  - Lymphoma [Unknown]
  - Infection [Unknown]
  - Tuberculosis [Unknown]
  - Toxic epidermal necrolysis [Unknown]
  - Pseudomonas infection [Unknown]
  - Pyrexia [Unknown]
  - Lymphadenopathy [Unknown]
  - Abnormal loss of weight [Unknown]
  - Night sweats [Unknown]
  - Rash maculo-papular [Unknown]
  - Fungal infection [Unknown]
